FAERS Safety Report 7689240-6 (Version None)
Quarter: 2011Q3

REPORT INFORMATION
  Report Type: 
  Country: None (occurrence: None)
  Receive Date: 20110811
  Receipt Date: 20110726
  Transmission Date: 20111222
  Serious: Yes (Other)
  Sender: FDA-Public Use
  Company Number: 2011AP001595

PATIENT
  Age: 79 Year
  Sex: Female

DRUGS (7)
  1. ROSUVASTATIN CALCIUM [Concomitant]
  2. PROPRANOLOL [Concomitant]
  3. HYDROCHLORIDE [Concomitant]
  4. ESTROGENS CONJUGATED [Concomitant]
  5. METHENAMINE HIPPURATE [Concomitant]
  6. LATANOPROST [Suspect]
     Indication: GLAUCOMA
     Dosage: OPH
     Route: 047
  7. ALPRAZOLAM [Concomitant]

REACTIONS (10)
  - OCULAR HYPERAEMIA [None]
  - EYE PRURITUS [None]
  - HYPERSENSITIVITY [None]
  - EYE SWELLING [None]
  - SWELLING FACE [None]
  - VISION BLURRED [None]
  - HEADACHE [None]
  - PRODUCT SUBSTITUTION ISSUE [None]
  - PERIORBITAL OEDEMA [None]
  - CATARACT OPERATION [None]
